FAERS Safety Report 11558212 (Version 1)
Quarter: 2015Q3

REPORT INFORMATION
  Report Type: Report from Study
  Country: VE (occurrence: VE)
  Receive Date: 20150928
  Receipt Date: 20150928
  Transmission Date: 20151125
  Serious: Yes (Other)
  Sender: FDA-Public Use
  Company Number: PHHY2015VE106181

PATIENT
  Age: 67 Year
  Sex: Female

DRUGS (2)
  1. ACLASTA [Suspect]
     Active Substance: ZOLEDRONIC ACID
     Indication: OSTEOPOROSIS
     Dosage: 1 DF (5MG/100 ML), Q12MO
     Route: 042
     Dates: start: 2013
  2. IDENA [Concomitant]
     Indication: OSTEOPOROSIS
     Dosage: UNK UNK, QMO
     Route: 065
     Dates: start: 20150809

REACTIONS (7)
  - Central nervous system lesion [Unknown]
  - General physical health deterioration [Unknown]
  - Asthenia [Unknown]
  - Fall [Unknown]
  - Malaise [Unknown]
  - Loss of consciousness [Unknown]
  - Insomnia [Unknown]

NARRATIVE: CASE EVENT DATE: 20150326
